FAERS Safety Report 20933125 (Version 1)
Quarter: 2022Q2

REPORT INFORMATION
  Report Type: Spontaneous
  Country: DE (occurrence: None)
  Receive Date: 20220608
  Receipt Date: 20220608
  Transmission Date: 20220721
  Serious: Yes (Other)
  Sender: FDA-Public Use
  Company Number: 2022A210508

PATIENT
  Sex: Male

DRUGS (1)
  1. ACLIDINIUM BROMIDE\FORMOTEROL FUMARATE [Suspect]
     Active Substance: ACLIDINIUM BROMIDE\FORMOTEROL FUMARATE
     Indication: Chronic obstructive pulmonary disease
     Route: 065
     Dates: start: 202205

REACTIONS (1)
  - Narcolepsy [Unknown]
